FAERS Safety Report 21768442 (Version 1)
Quarter: 2022Q4

REPORT INFORMATION
  Report Type: Spontaneous
  Country: US (occurrence: None)
  Receive Date: 20221221
  Receipt Date: 20221221
  Transmission Date: 20230112
  Serious: Yes (Hospitalization)
  Sender: FDA-Public Use
  Company Number: None

PATIENT
  Age: 75 Year
  Sex: Male

DRUGS (1)
  1. CAPECITABINE [Suspect]
     Active Substance: CAPECITABINE
     Dosage: FREQUENCY : TWICE A DAY;?
     Route: 048

REACTIONS (7)
  - Gout [None]
  - Arthropathy [None]
  - Oedema peripheral [None]
  - Gait disturbance [None]
  - Asthenia [None]
  - Diarrhoea [None]
  - COVID-19 [None]

NARRATIVE: CASE EVENT DATE: 20221221
